FAERS Safety Report 13409805 (Version 1)
Quarter: 2017Q2

REPORT INFORMATION
  Report Type: Spontaneous
  Country: US (occurrence: US)
  Receive Date: 20170406
  Receipt Date: 20170406
  Transmission Date: 20170830
  Serious: No
  Sender: FDA-Public Use
  Company Number: US-PFIZER INC-2017137370

PATIENT
  Sex: Female

DRUGS (1)
  1. ADVIL [Suspect]
     Active Substance: IBUPROFEN
     Dosage: 6 DF, DAILY (USED AS MUCH AS 6 ADVIL ON A DAILY BASIS)

REACTIONS (3)
  - Intentional product misuse [Unknown]
  - Gastric disorder [Unknown]
  - Feeling hot [Unknown]
